FAERS Safety Report 6588933-1 (Version None)
Quarter: 2010Q1

REPORT INFORMATION
  Report Type: 
  Country: None (occurrence: None)
  Receive Date: 20100218
  Receipt Date: 20100209
  Transmission Date: 20100710
  Serious: Yes (Death)
  Sender: FDA-Public Use
  Company Number: IT-PFIZER INC-2008011990

PATIENT
  Age: 68 Year
  Sex: Female
  Weight: 60 kg

DRUGS (1)
  1. SUNITINIB MALATE [Suspect]
     Indication: RENAL CANCER
     Dosage: 37.5 MG, 1X/DAY
     Route: 048
     Dates: start: 20070108, end: 20080129

REACTIONS (1)
  - CEREBRAL HAEMORRHAGE [None]
